APPROVED DRUG PRODUCT: TROPICAMIDE
Active Ingredient: TROPICAMIDE
Strength: 0.5%
Dosage Form/Route: SOLUTION/DROPS;OPHTHALMIC
Application: A087636 | Product #001
Applicant: MIZA PHARMACEUTICALS USA INC
Approved: Jul 30, 1982 | RLD: No | RS: No | Type: DISCN